FAERS Safety Report 22015020 (Version 1)
Quarter: 2023Q1

REPORT INFORMATION
  Report Type: Spontaneous
  Country: US (occurrence: US)
  Receive Date: 20230221
  Receipt Date: 20230221
  Transmission Date: 20230418
  Serious: No
  Sender: FDA-Public Use
  Company Number: US-SA-SAC20230216001208

PATIENT
  Sex: Female

DRUGS (2)
  1. DUPIXENT [Suspect]
     Active Substance: DUPILUMAB
     Indication: Dermatitis
     Dosage: QOW
     Route: 058
  2. OTEZLA [Concomitant]
     Active Substance: APREMILAST
     Dosage: UNK

REACTIONS (2)
  - Arthropathy [Unknown]
  - Product use in unapproved indication [Unknown]
